FAERS Safety Report 13234687 (Version 1)
Quarter: 2017Q1

REPORT INFORMATION
  Report Type: Spontaneous
  Country: US (occurrence: US)
  Receive Date: 20170214
  Receipt Date: 20170214
  Transmission Date: 20170428
  Serious: Yes (Hospitalization)
  Sender: FDA-Public Use
  Company Number: None

PATIENT
  Age: 61 Year
  Sex: Male
  Weight: 70 kg

DRUGS (2)
  1. ASPIRIN. [Suspect]
     Active Substance: ASPIRIN
     Indication: ATRIAL FIBRILLATION
     Route: 048
     Dates: start: 20161227, end: 20161228
  2. ENOXAPARIN [Suspect]
     Active Substance: ENOXAPARIN
     Indication: ATRIAL FIBRILLATION
     Route: 058
     Dates: start: 20161227, end: 20170101

REACTIONS (1)
  - Abdominal wall haematoma [None]
